FAERS Safety Report 5331001-7 (Version None)
Quarter: 2007Q2

REPORT INFORMATION
  Report Type: 
  Country: None (occurrence: None)
  Receive Date: 20070517
  Receipt Date: 20070504
  Transmission Date: 20071010
  Serious: Yes (Death)
  Sender: FDA-Public Use
  Company Number: S07-UKI-02036-01

PATIENT
  Age: 63 Year
  Sex: Female

DRUGS (13)
  1. CITALOPRAM HYDROBROMIDE [Suspect]
     Dosage: 10 MG QD PO
     Route: 048
  2. OMEPRAZOLE [Suspect]
     Dosage: 20 MG QD PO
     Route: 048
  3. PERINDOPRIL [Suspect]
     Indication: HYPERTENSION
     Dosage: 4 MG QD PO
     Route: 048
  4. ADIZEM - SLOW RELEASE (DILTIAZEM HYDROCHLORIDE) [Concomitant]
  5. BECONASE [Concomitant]
  6. FRUSEMIDE [Concomitant]
  7. OLANZAPINE [Concomitant]
  8. PARACETAMOL [Concomitant]
  9. SALBUTAMOL [Concomitant]
  10. SENNA [Concomitant]
  11. THIAMINE [Concomitant]
  12. VITAMIN B COMPLEX CAP [Concomitant]
  13. CILNUTREN [Concomitant]

REACTIONS (3)
  - ANGIOEDEMA [None]
  - LARYNGEAL OEDEMA [None]
  - NONSPECIFIC REACTION [None]
